FAERS Safety Report 19167292 (Version 1)
Quarter: 2021Q2

REPORT INFORMATION
  Report Type: Spontaneous
  Country: US (occurrence: US)
  Receive Date: 20210422
  Receipt Date: 20210422
  Transmission Date: 20210717
  Serious: Yes (Hospitalization, Other)
  Sender: FDA-Public Use
  Company Number: US-MACLEODS PHARMACEUTICALS US LTD-MAC2021030872

PATIENT

DRUGS (8)
  1. PREDNISOLONE. [Suspect]
     Active Substance: PREDNISOLONE
     Indication: NECROTISING RETINITIS
     Dosage: UNK, 1% EYE DROPS, EVERY 2 HOURS
     Route: 061
  2. TRIAMCINOLONE ACETONIDE. [Suspect]
     Active Substance: TRIAMCINOLONE ACETONIDE
     Indication: POST PROCEDURAL INFLAMMATION
     Dosage: 1.5 MILLIGRAM, PRESERVATIVE?FREE (TA) INJECTION ANTERIOR CHAMBER OF THE LEFT EYE
  3. TRIAMCINOLONE ACETONIDE. [Suspect]
     Active Substance: TRIAMCINOLONE ACETONIDE
     Indication: IRITIS
  4. VALACYCLOVIR [Suspect]
     Active Substance: VALACYCLOVIR HYDROCHLORIDE
     Indication: ANTIVIRAL TREATMENT
     Dosage: 1 GRAM, TID
     Route: 048
  5. ACYCLOVIR. [Suspect]
     Active Substance: ACYCLOVIR
     Indication: NECROTISING RETINITIS
     Dosage: 10 MILLIGRAM/KILOGRAM, TID, EVERY 8 HOURS
     Route: 042
  6. PREDNISONE. [Suspect]
     Active Substance: PREDNISONE
     Indication: ANTIVIRAL TREATMENT
     Dosage: 40 MILLIGRAM, QD
     Route: 048
  7. PREDNISONE. [Suspect]
     Active Substance: PREDNISONE
     Indication: VITRITIS
     Dosage: UNK, DOSE WAS TAPERED
     Route: 065
  8. ATROPINE. [Suspect]
     Active Substance: ATROPINE
     Indication: NECROTISING RETINITIS
     Dosage: UNK UNK, TID
     Route: 061

REACTIONS (6)
  - Retinitis viral [Recovered/Resolved]
  - Varicella zoster virus infection [Recovered/Resolved]
  - Necrotising retinitis [Recovered/Resolved]
  - Ophthalmic herpes simplex [Recovered/Resolved]
  - Rhegmatogenous retinal detachment [Recovered/Resolved]
  - Vitritis [Recovered/Resolved]
